FAERS Safety Report 12639713 (Version 1)
Quarter: 2016Q3

REPORT INFORMATION
  Report Type: Report from Study
  Country: US (occurrence: US)
  Receive Date: 20160810
  Receipt Date: 20160810
  Transmission Date: 20161109
  Serious: Yes (Hospitalization)
  Sender: FDA-Public Use
  Company Number: US-ROCHE-715250

PATIENT
  Age: 66 Year
  Sex: Male
  Weight: 96 kg

DRUGS (9)
  1. ERLOTINIB [Suspect]
     Active Substance: ERLOTINIB
     Indication: PANCREATIC CARCINOMA
     Dosage: 100MG, QD
     Route: 048
  2. GEMCITABINE [Suspect]
     Active Substance: GEMCITABINE\GEMCITABINE HYDROCHLORIDE
     Indication: PANCREATIC CARCINOMA
     Dosage: FREQUENCY: DAYS 1, 8 AND 15
     Route: 042
  3. LOVASTATIN. [Concomitant]
     Active Substance: LOVASTATIN
  4. NEXIUM [Concomitant]
     Active Substance: ESOMEPRAZOLE MAGNESIUM
  5. PROPAFENONE. [Concomitant]
     Active Substance: PROPAFENONE
  6. VISMODEGIB [Suspect]
     Active Substance: VISMODEGIB
     Indication: ADENOCARCINOMA PANCREAS
  7. DILTIAZEM. [Concomitant]
     Active Substance: DILTIAZEM
  8. ERLOTINIB [Suspect]
     Active Substance: ERLOTINIB
     Indication: ADENOCARCINOMA PANCREAS
     Dosage: 75MG, QD
     Route: 048
  9. VISMODEGIB [Suspect]
     Active Substance: VISMODEGIB
     Indication: PANCREATIC CARCINOMA
     Route: 048

REACTIONS (11)
  - Pyrexia [Unknown]
  - Nausea [Recovered/Resolved]
  - Lung infection [Unknown]
  - Hyponatraemia [Recovering/Resolving]
  - Hypokalaemia [Recovering/Resolving]
  - Dehydration [Recovering/Resolving]
  - Pneumonia [Recovering/Resolving]
  - Decreased appetite [Recovering/Resolving]
  - Diarrhoea [Unknown]
  - Fatigue [Unknown]
  - Non-cardiac chest pain [Unknown]

NARRATIVE: CASE EVENT DATE: 20100618
